FAERS Safety Report 10052817 (Version 2)
Quarter: 2014Q2

REPORT INFORMATION
  Report Type: Spontaneous
  Country: US (occurrence: US)
  Receive Date: 20140402
  Receipt Date: 20140402
  Transmission Date: 20141212
  Serious: Yes (Death, Hospitalization, Other)
  Sender: FDA-Public Use
  Company Number: US-BAXTER-2014BAX015200

PATIENT
  Sex: Male

DRUGS (1)
  1. DIANEAL LOW CALCIUM [Suspect]
     Indication: PERITONEAL DIALYSIS
     Dosage: 3X6 LITERS BAGS
     Route: 033

REACTIONS (8)
  - Septic shock [Fatal]
  - Peritonitis bacterial [Fatal]
  - Renal failure chronic [Fatal]
  - Diabetes mellitus [Fatal]
  - Hypothyroidism [Fatal]
  - White blood cell count increased [Recovering/Resolving]
  - Dyspnoea [Not Recovered/Not Resolved]
  - Hypotension [Not Recovered/Not Resolved]
